FAERS Safety Report 5565958-6 (Version None)
Quarter: 2007Q4

REPORT INFORMATION
  Report Type: 
  Country: None (occurrence: None)
  Receive Date: 20071219
  Receipt Date: 20071212
  Transmission Date: 20080405
  Serious: Yes (Death, Hospitalization)
  Sender: FDA-Public Use
  Company Number: JP-JNJFOC-20071202108

PATIENT
  Sex: Female

DRUGS (7)
  1. DORIBAX [Suspect]
     Indication: PNEUMONIA ASPIRATION
     Route: 041
  2. FUNGUARD [Suspect]
     Indication: RESPIRATORY MONILIASIS
     Route: 041
  3. FAMOTIDINE [Suspect]
     Indication: GASTRIC ULCER
     Route: 041
  4. SULBACTAM SODIUM/AMPICILLIN SODIUM [Concomitant]
     Route: 042
  5. SULBACTAM SODIUM/AMPICILLIN SODIUM [Concomitant]
     Route: 042
  6. PANABATE [Concomitant]
     Indication: DISSEMINATED INTRAVASCULAR COAGULATION
     Route: 042
  7. AMIKACIN SULFATE [Concomitant]
     Route: 041

REACTIONS (4)
  - COAGULOPATHY [None]
  - PLATELET COUNT DECREASED [None]
  - PNEUMONIA ASPIRATION [None]
  - PUTAMEN HAEMORRHAGE [None]
